FAERS Safety Report 8235777-0 (Version None)
Quarter: 2012Q1

REPORT INFORMATION
  Report Type: 
  Country: None (occurrence: None)
  Receive Date: 20120326
  Receipt Date: 20120323
  Transmission Date: 20120608
  Serious: Yes (Death)
  Sender: FDA-Public Use
  Company Number: PHHY2012JP024955

PATIENT
  Age: 53 Year
  Sex: Male

DRUGS (1)
  1. CLOZARIL [Suspect]
     Indication: SCHIZOPHRENIA
     Route: 048
     Dates: start: 20110630

REACTIONS (3)
  - DYSPHAGIA [None]
  - ASPHYXIA [None]
  - CHOKING [None]
